FAERS Safety Report 8383360 (Version 4)
Quarter: 2012Q4

REPORT INFORMATION
  Report Type: 
  Country: US (occurrence: US)
  Receive Date: 20120201
  Receipt Date: 20121009
  Transmission Date: 20130627
  Serious: Yes (Hospitalization, Congenital Anomaly)
  Sender: FDA-Public Use
  Company Number: US-GLAXOSMITHKLINE-A0930794A

PATIENT
  Age: 0 Year
  Sex: Male

DRUGS (2)
  1. PAXIL [Suspect]
     Indication: DEPRESSION
     Dosage: 40MG Per day
     Route: 064
     Dates: start: 199709
  2. PRENATAL VITAMINS [Concomitant]

REACTIONS (5)
  - Hereditary haemorrhagic telangiectasia [Unknown]
  - Pulmonary arteriovenous fistula [Unknown]
  - Pulmonary artery dilatation [Unknown]
  - Dyspnoea [Unknown]
  - Foetal exposure during pregnancy [Unknown]
